FAERS Safety Report 4396905-0 (Version None)
Quarter: 2004Q3

REPORT INFORMATION
  Report Type: 
  Country: None (occurrence: None)
  Receive Date: 20040708
  Receipt Date: 20040701
  Transmission Date: 20050211
  Serious: Yes (Life-Threatening, Hospitalization)
  Sender: FDA-Public Use
  Company Number: 2004PK01121

PATIENT
  Age: 79 Year
  Sex: Female
  Weight: 71.4 kg

DRUGS (6)
  1. METOPROLOL TARTRATE [Suspect]
     Indication: HYPERTENSION
     Dosage: 47.5 MG TID PO
     Route: 048
     Dates: start: 20000101
  2. AMARYL [Suspect]
     Indication: DIABETES MELLITUS NON-INSULIN-DEPENDENT
     Dosage: 2 MG DAILY PO
     Route: 048
     Dates: start: 20010101, end: 20040208
  3. HUMALOG [Suspect]
     Indication: DIABETES MELLITUS NON-INSULIN-DEPENDENT
     Dosage: 48 IU SQ
     Route: 058
     Dates: start: 20030701
  4. DIGITOXIN TAB [Concomitant]
  5. ISCOVER [Concomitant]
  6. UNAT [Concomitant]

REACTIONS (2)
  - DRUG INTERACTION [None]
  - SHOCK HYPOGLYCAEMIC [None]
